FAERS Safety Report 18649796 (Version 1)
Quarter: 2020Q4

REPORT INFORMATION
  Report Type: Report from Study
  Country: FR (occurrence: FR)
  Receive Date: 20201222
  Receipt Date: 20201222
  Transmission Date: 20210114
  Serious: Yes (Hospitalization, Other)
  Sender: FDA-Public Use
  Company Number: FR-B.I. PHARMACEUTICALS,INC./RIDGEFIELD-2020-BI-069371

PATIENT
  Age: 53 Year
  Sex: Male

DRUGS (1)
  1. OFEV [Suspect]
     Active Substance: NINTEDANIB
     Indication: INTERSTITIAL LUNG DISEASE
     Route: 048
     Dates: start: 20200914, end: 20201212

REACTIONS (2)
  - Immune thrombocytopenia [Recovered/Resolved]
  - Sjogren^s syndrome [Unknown]

NARRATIVE: CASE EVENT DATE: 20200914
